FAERS Safety Report 6445592-6 (Version None)
Quarter: 2009Q4

REPORT INFORMATION
  Report Type: 
  Country: None (occurrence: None)
  Receive Date: 20091118
  Receipt Date: 20091118
  Transmission Date: 20100525
  Serious: Yes (Hospitalization)
  Sender: FDA-Public Use
  Company Number: None

PATIENT
  Sex: Female
  Weight: 13.2 kg

DRUGS (2)
  1. CYTARABINE [Suspect]
     Dosage: 280 MG
  2. ETOPOSIDE [Suspect]
     Dosage: 165 MG

REACTIONS (6)
  - ASCITES [None]
  - CAECITIS [None]
  - HYPOXIA [None]
  - NEUTROPENIA [None]
  - PERIRECTAL ABSCESS [None]
  - PYREXIA [None]
